FAERS Safety Report 9571396 (Version 2)
Quarter: 2013Q4

REPORT INFORMATION
  Report Type: Spontaneous
  Country: PL (occurrence: PL)
  Receive Date: 20131001
  Receipt Date: 20131011
  Transmission Date: 20140711
  Serious: Yes (Other)
  Sender: FDA-Public Use
  Company Number: PL-ASTRAZENECA-2013SE72606

PATIENT
  Age: 74 Year
  Sex: Female

DRUGS (2)
  1. ANASTROZOLE [Suspect]
     Indication: BREAST CANCER FEMALE
     Route: 048
     Dates: start: 200706, end: 201005
  2. FULVESTRANT [Suspect]
     Indication: BREAST CANCER FEMALE
     Route: 030
     Dates: start: 201208, end: 201309

REACTIONS (3)
  - Malignant neoplasm progression [Recovering/Resolving]
  - Dry mouth [Recovered/Resolved]
  - Oedema peripheral [Unknown]
